FAERS Safety Report 9062544 (Version 1)
Quarter: 2013Q1

REPORT INFORMATION
  Report Type: Spontaneous
  Country: DE (occurrence: DE)
  Receive Date: 20130128
  Receipt Date: 20130128
  Transmission Date: 20140127
  Serious: Yes (Other)
  Sender: FDA-Public Use
  Company Number: DE-AMGEN-DEUSP2013005311

PATIENT
  Age: 76 Year
  Sex: Male
  Weight: 89 kg

DRUGS (6)
  1. XGEVA [Suspect]
     Indication: METASTASES TO BONE
     Dosage: 120 MG, Q4WK
     Route: 058
     Dates: start: 20110920, end: 20121203
  2. XGEVA [Suspect]
  3. ATACAND [Concomitant]
     Dosage: UNK UNK, BID
     Route: 048
  4. BELOC                              /00376902/ [Concomitant]
     Dosage: UNK UNK, BID
     Route: 048
  5. ASS [Concomitant]
  6. SORTIS [Concomitant]
     Dosage: UNK UNK, BID
     Route: 048

REACTIONS (2)
  - Osteonecrosis of jaw [Recovering/Resolving]
  - Tooth disorder [Recovered/Resolved]
